FAERS Safety Report 6395722-X (Version None)
Quarter: 2009Q4

REPORT INFORMATION
  Report Type: 
  Country: None (occurrence: None)
  Receive Date: 20091009
  Receipt Date: 20090929
  Transmission Date: 20100525
  Serious: Yes (Death)
  Sender: FDA-Public Use
  Company Number: GB-ROCHE-659697

PATIENT
  Age: 57 Year
  Sex: Male

DRUGS (12)
  1. CAPECITABINE [Suspect]
     Indication: COLON CANCER METASTATIC
     Route: 048
     Dates: start: 20090818, end: 20090819
  2. ASPIRIN [Concomitant]
     Route: 048
  3. ATENOLOL [Concomitant]
  4. CARBOPLATIN [Concomitant]
     Route: 042
     Dates: start: 20090819
  5. CLOPIDOGREL [Concomitant]
     Route: 048
  6. DEXAMETHASONE 0.5MG TAB [Concomitant]
     Indication: CHEMOTHERAPY
  7. FRUSEMIDE [Concomitant]
  8. NITROGLYCERIN [Concomitant]
  9. ISOSORBIDE MONONITRATE [Concomitant]
     Indication: ANGINA PECTORIS
  10. METOCLOPRAMIDE [Concomitant]
  11. NICORANDIL [Concomitant]
     Indication: ANGINA PECTORIS
     Route: 048
  12. RANITIDINE [Concomitant]

REACTIONS (2)
  - ACUTE MYOCARDIAL INFARCTION [None]
  - CARDIOGENIC SHOCK [None]
